FAERS Safety Report 13081582 (Version 5)
Quarter: 2019Q1

REPORT INFORMATION
  Report Type: Report from Study
  Country: DE (occurrence: DE)
  Receive Date: 20170103
  Receipt Date: 20190130
  Transmission Date: 20190417
  Serious: Yes (Death, Hospitalization, Other)
  Sender: FDA-Public Use
  Company Number: DE-INCYTE CORPORATION-2015IN003680

PATIENT

DRUGS (25)
  1. INCB018424 [Suspect]
     Active Substance: RUXOLITINIB
     Indication: PRIMARY MYELOFIBROSIS
     Dosage: 5 MG (4 DF), QD
     Route: 048
     Dates: start: 20140818, end: 20140930
  2. FLUTICANOSE [Concomitant]
     Indication: CHRONIC OBSTRUCTIVE PULMONARY DISEASE
     Dosage: 250 OT, QD
     Route: 065
     Dates: start: 20120101, end: 20160104
  3. ASPIRIN. [Concomitant]
     Active Substance: ASPIRIN
     Indication: PRODUCT USED FOR UNKNOWN INDICATION
     Dosage: 100 MG, QD
     Route: 065
     Dates: start: 20140926, end: 20140930
  4. INCB018424 [Suspect]
     Active Substance: RUXOLITINIB
     Dosage: 10 MG/05 MG, BID (1-01)
     Route: 048
     Dates: end: 20161225
  5. TRIMETHOPRIM SULFAMETHOXAZOLE [Concomitant]
     Active Substance: SULFAMETHOXAZOLE\TRIMETHOPRIM
     Indication: PRODUCT USED FOR UNKNOWN INDICATION
     Dosage: 240/5 ML, QD
     Route: 065
     Dates: start: 20140101, end: 20160104
  6. INCB018424 [Suspect]
     Active Substance: RUXOLITINIB
     Dosage: 5 MG (4 DF), QD
     Route: 048
     Dates: start: 20141209
  7. PREDNISOLONE. [Concomitant]
     Active Substance: PREDNISOLONE
     Indication: MYELOFIBROSIS
     Dosage: 7.5 MG, QD
     Route: 065
     Dates: start: 20120101, end: 20160104
  8. PANTOPRAZOLE [Concomitant]
     Active Substance: PANTOPRAZOLE
     Indication: GASTROINTESTINAL DISORDER
     Dosage: 40 MG, QD
     Route: 065
     Dates: start: 20100101
  9. SALMETEROL [Concomitant]
     Active Substance: SALMETEROL
     Indication: CHRONIC OBSTRUCTIVE PULMONARY DISEASE
     Dosage: 50 OT, QD
     Route: 065
     Dates: start: 20120101, end: 20160104
  10. ALLOPURINOL. [Concomitant]
     Active Substance: ALLOPURINOL
     Indication: BLOOD URIC ACID INCREASED
     Dosage: 300 OT, QD
     Route: 065
     Dates: start: 20150812
  11. SIMVASTATIN. [Concomitant]
     Active Substance: SIMVASTATIN
     Indication: CARDIAC FAILURE
     Dosage: 20 MG, QD
     Route: 065
     Dates: start: 20100101, end: 20160104
  12. CALCIUM +VIT D [Concomitant]
     Active Substance: CALCIUM\VITAMIN D
     Indication: PRODUCT USED FOR UNKNOWN INDICATION
     Dosage: 0.5 G +400 IU, QD
     Route: 065
     Dates: start: 20120101, end: 20160104
  13. TIOTROPIUM BROMIDE [Concomitant]
     Active Substance: TIOTROPIUM BROMIDE
     Indication: CHRONIC OBSTRUCTIVE PULMONARY DISEASE
     Dosage: 18 UG, QD
     Route: 065
     Dates: start: 20120101, end: 20160104
  14. MORPHINE [Concomitant]
     Active Substance: MORPHINE
     Indication: PAIN
     Dosage: 60 OT, QD
     Route: 065
     Dates: start: 20140101, end: 20160104
  15. INCB018424 [Suspect]
     Active Substance: RUXOLITINIB
     Dosage: 2 X 5 MG, 2 X 10 MG DAILY EXCHANGE
     Route: 048
     Dates: start: 20140930
  16. NEBIVOLOL. [Concomitant]
     Active Substance: NEBIVOLOL
     Indication: HYPERTENSION
     Dosage: 10 MG, QD
     Route: 065
     Dates: start: 20021028, end: 20160101
  17. POTASSIUM [Concomitant]
     Active Substance: POTASSIUM
     Indication: HYPOKALAEMIA
     Dosage: 600 OT, QD
     Route: 065
     Dates: start: 20160104
  18. LEVETIRACETAM. [Concomitant]
     Active Substance: LEVETIRACETAM
     Indication: EPILEPSY
     Dosage: 1000 OT, QD
     Route: 065
     Dates: start: 20160104
  19. RAMIPRIL. [Concomitant]
     Active Substance: RAMIPRIL
     Indication: HYPERTENSION
     Dosage: 2.5 MG, QD
     Route: 065
     Dates: start: 20120101, end: 20160101
  20. HYDROCHLOROTHIAZIDE. [Concomitant]
     Active Substance: HYDROCHLOROTHIAZIDE
     Indication: RENAL FAILURE
     Dosage: 12.5 MG, QD
     Route: 065
     Dates: start: 20120101, end: 20160104
  21. ENOXAPARIN [Concomitant]
     Active Substance: ENOXAPARIN
     Indication: ATRIAL FIBRILLATION
     Dosage: 80 MG, QD
     Route: 065
     Dates: start: 20080101, end: 20141203
  22. INCB018424 [Suspect]
     Active Substance: RUXOLITINIB
     Dosage: 5 MG/10 MG, QD (ALTERNATING DAILY BETWEEN 2 DF A 5 MG AND 2 DF A 10 MG PER DAY)
     Route: 048
     Dates: start: 20150316
  23. FLECAINIDE [Concomitant]
     Active Substance: FLECAINIDE
     Indication: ATRIAL FIBRILLATION
     Dosage: 100 MG, UNK
     Route: 065
     Dates: start: 20090101, end: 20160104
  24. METAMIZOLE [Concomitant]
     Active Substance: METAMIZOLE
     Indication: PAIN
     Dosage: 80 OT, QD
     Route: 065
     Dates: start: 20140101, end: 20160104
  25. FOLIC ACID. [Concomitant]
     Active Substance: FOLIC ACID
     Indication: FOLATE DEFICIENCY
     Dosage: 5 MG, QD
     Route: 065
     Dates: start: 20140813, end: 20160104

REACTIONS (9)
  - White blood cell count increased [Unknown]
  - Lung infection [Fatal]
  - Pneumonia [Recovered/Resolved]
  - Sepsis [Fatal]
  - Pulmonary congestion [Fatal]
  - Renal failure [Fatal]
  - Cardiac failure [Fatal]
  - Haemoglobin decreased [Unknown]
  - Platelet count decreased [Unknown]

NARRATIVE: CASE EVENT DATE: 20150701
